FAERS Safety Report 9976102 (Version 1)
Quarter: 2014Q1

REPORT INFORMATION
  Report Type: Report from Study
  Country: CA (occurrence: CA)
  Receive Date: 20140306
  Receipt Date: 20140306
  Transmission Date: 20141002
  Serious: Yes (Hospitalization)
  Sender: FDA-Public Use
  Company Number: CA-GILEAD-2014-0095964

PATIENT
  Age: 29 Year
  Sex: Female
  Weight: 130 kg

DRUGS (1)
  1. TENOFOVIR DISOPROXIL FUMARATE [Suspect]
     Indication: HEPATITIS B
     Dosage: 300 MG, UNK
     Route: 048
     Dates: start: 20131024

REACTIONS (3)
  - Cholelithiasis [Unknown]
  - Pain [Unknown]
  - Fatigue [Not Recovered/Not Resolved]
